FAERS Safety Report 21794533 (Version 2)
Quarter: 2023Q1

REPORT INFORMATION
  Report Type: Report from Study
  Country: BE (occurrence: BE)
  Receive Date: 20221229
  Receipt Date: 20230107
  Transmission Date: 20230418
  Serious: Yes (Other)
  Sender: FDA-Public Use
  Company Number: BE-002147023-NVSC2022BE298447

PATIENT
  Sex: Male

DRUGS (2)
  1. LEQVIO [Suspect]
     Active Substance: INCLISIRAN SODIUM
     Indication: Hypercholesterolaemia
     Dosage: UNK (3 MONTHS THEN EVERY 6 MONTHS)
     Route: 065
     Dates: start: 20220922
  2. LEQVIO [Suspect]
     Active Substance: INCLISIRAN SODIUM
     Dosage: UNK
     Route: 065
     Dates: start: 20221222

REACTIONS (4)
  - Hot flush [Unknown]
  - Hypertension [Unknown]
  - Heart rate increased [Unknown]
  - Injection site rash [Unknown]
